FAERS Safety Report 4705102-8 (Version None)
Quarter: 2005Q3

REPORT INFORMATION
  Report Type: 
  Country: None (occurrence: None)
  Receive Date: 20050701
  Receipt Date: 20050623
  Transmission Date: 20060218
  Serious: Yes (Hospitalization)
  Sender: FDA-Public Use
  Company Number: JP-JNJFOC-20050602245

PATIENT
  Age: 75 Year
  Sex: Male

DRUGS (6)
  1. RISPERDAL [Suspect]
     Indication: DRUG USE FOR UNKNOWN INDICATION
     Route: 049
  2. VOGLIBOSE [Concomitant]
     Route: 049
  3. TAMSULOSIN [Concomitant]
     Route: 049
  4. GLIMEPIRIDE [Concomitant]
     Route: 049
  5. SENNOSIDE [Concomitant]
     Dosage: 2 DOSAGE FORM
     Route: 049
  6. DISTIGMINE [Concomitant]
     Route: 049

REACTIONS (1)
  - RHABDOMYOLYSIS [None]
